FAERS Safety Report 6102606-0 (Version None)
Quarter: 2009Q1

REPORT INFORMATION
  Report Type: 
  Country: None (occurrence: None)
  Receive Date: 20090304
  Receipt Date: 20081002
  Transmission Date: 20090719
  Serious: No
  Sender: FDA-Public Use
  Company Number: A0750297A

PATIENT
  Age: 44 Year
  Sex: Male

DRUGS (5)
  1. REQUIP XL [Suspect]
     Indication: PARKINSON'S DISEASE
     Dosage: 8MG PER DAY
     Route: 048
     Dates: start: 20080901
  2. CO Q10 [Concomitant]
  3. VITAMIN B COMPLEX CAP [Concomitant]
  4. CALCIUM [Concomitant]
  5. MAGNESIUM SULFATE [Concomitant]

REACTIONS (2)
  - MALAISE [None]
  - NAUSEA [None]
